FAERS Safety Report 5381674-8 (Version None)
Quarter: 2007Q3

REPORT INFORMATION
  Report Type: 
  Country: None (occurrence: None)
  Receive Date: 20070705
  Receipt Date: 20070705
  Transmission Date: 20080115
  Serious: Yes (Other)
  Sender: FDA-Public Use
  Company Number: None

PATIENT
  Sex: Female
  Weight: 112.0385 kg

DRUGS (2)
  1. STRATTERA [Suspect]
     Indication: BIPOLAR II DISORDER
     Dosage: 40 TO 60MG ONCE DAILY AM ORAL CAPSULE
     Route: 048
     Dates: start: 20070606, end: 20070703
  2. ABILIFY [Suspect]
     Dosage: 5MG TWICE DAILY ORAL TABLET
     Route: 048
     Dates: start: 20050825, end: 20070703

REACTIONS (3)
  - LACRIMATION INCREASED [None]
  - MUSCLE TIGHTNESS [None]
  - SPEECH DISORDER [None]
